FAERS Safety Report 13347251 (Version 2)
Quarter: 2017Q2

REPORT INFORMATION
  Report Type: Report from Study
  Country: US (occurrence: US)
  Receive Date: 20170317
  Receipt Date: 20170510
  Transmission Date: 20170830
  Serious: Yes (Hospitalization)
  Sender: FDA-Public Use
  Company Number: US-TAKEDA-2017TUS005285

PATIENT
  Age: 35 Year
  Sex: Female
  Weight: 74.5 kg

DRUGS (18)
  1. PREDNISONE. [Concomitant]
     Active Substance: PREDNISONE
     Indication: COLITIS ULCERATIVE
     Dosage: 40 MG, QD
     Route: 048
     Dates: start: 20160919, end: 20161009
  2. PREDNISONE. [Concomitant]
     Active Substance: PREDNISONE
     Dosage: 35 MG, QD
     Route: 048
     Dates: start: 20161010, end: 20161016
  3. PREDNISONE. [Concomitant]
     Active Substance: PREDNISONE
     Dosage: 17.5 MG, QD
     Route: 048
     Dates: start: 20161122, end: 20161216
  4. RANITIDINE HCL [Concomitant]
     Active Substance: RANITIDINE HYDROCHLORIDE
     Indication: DYSPEPSIA
     Dosage: 150 MG, BID
     Route: 048
     Dates: start: 20170224
  5. CALCIUM CARBONATE. [Concomitant]
     Active Substance: CALCIUM CARBONATE
     Indication: DYSPEPSIA
     Dosage: UNK, QD
     Route: 048
     Dates: start: 20161202
  6. VITAMIN D [Concomitant]
     Active Substance: CHOLECALCIFEROL
     Dosage: 2000 IU, UNK
     Route: 048
     Dates: start: 20160704
  7. LIALDA [Concomitant]
     Active Substance: MESALAMINE
     Indication: COLITIS ULCERATIVE
     Dosage: 2.4 MG, QD
     Route: 048
     Dates: start: 20160707
  8. PREDNISONE. [Concomitant]
     Active Substance: PREDNISONE
     Dosage: 25 MG, QD
     Route: 048
     Dates: start: 20161017, end: 20161114
  9. TYLENOL EXTRA STRENGTH [Concomitant]
     Active Substance: ACETAMINOPHEN
     Indication: BACK PAIN
     Dosage: UNK
     Route: 048
     Dates: start: 20161020, end: 20161020
  10. VEDOLIZUMAB [Suspect]
     Active Substance: VEDOLIZUMAB
     Dosage: 300 MG, UNK
     Route: 042
     Dates: start: 20161115
  11. DHA [Concomitant]
     Active Substance: DIETARY SUPPLEMENT
     Dosage: 200 MG, QD
     Route: 048
     Dates: start: 20160707
  12. PREDNISONE. [Concomitant]
     Active Substance: PREDNISONE
     Dosage: 20 MG, QD
     Route: 048
     Dates: start: 20161031, end: 20170119
  13. VEDOLIZUMAB [Suspect]
     Active Substance: VEDOLIZUMAB
     Indication: COLITIS ULCERATIVE
     Dosage: 300 MG, UNK
     Route: 042
     Dates: start: 20141015, end: 20160817
  14. PREDNISONE. [Concomitant]
     Active Substance: PREDNISONE
     Dosage: 15 MG, QD
     Route: 048
     Dates: start: 20161129, end: 20161213
  15. PRENATAL VITAMIN (NOS) [Concomitant]
     Dosage: UNK, QD
     Route: 048
     Dates: start: 20160707
  16. VEDOLIZUMAB [Suspect]
     Active Substance: VEDOLIZUMAB
     Dosage: 300 MG, Q8WEEKS
     Route: 042
     Dates: start: 20160818, end: 20161114
  17. PREDNISONE. [Concomitant]
     Active Substance: PREDNISONE
     Dosage: 15 MG, QD
     Route: 048
     Dates: start: 20170120
  18. TYLENOL EXTRA STRENGTH [Concomitant]
     Active Substance: ACETAMINOPHEN
     Indication: PYREXIA
     Dosage: 2000 MG, UNK
     Route: 048
     Dates: start: 20160811, end: 20160825

REACTIONS (3)
  - Dehydration [Unknown]
  - Pyrexia [Unknown]
  - Pregnancy [Unknown]

NARRATIVE: CASE EVENT DATE: 20160721
